FAERS Safety Report 23841862 (Version 2)
Quarter: 2024Q2

REPORT INFORMATION
  Report Type: Spontaneous
  Country: TR (occurrence: TR)
  Receive Date: 20240510
  Receipt Date: 20240626
  Transmission Date: 20240717
  Serious: Yes (Hospitalization)
  Sender: FDA-Public Use
  Company Number: TR-HALEON-2171393

PATIENT
  Sex: Female

DRUGS (1)
  1. ADVIL LIQUI-GELS [Suspect]
     Active Substance: IBUPROFEN
     Indication: Product used for unknown indication
     Dosage: EXPDATE:20260331EXPDATE:20260331
     Dates: start: 20240418, end: 20240419

REACTIONS (5)
  - Nasal congestion [Recovering/Resolving]
  - Product complaint [Unknown]
  - Wheezing [Unknown]
  - Toxicity to various agents [Unknown]
  - Dyspnoea [Unknown]

NARRATIVE: CASE EVENT DATE: 20240419
